FAERS Safety Report 17889306 (Version 1)
Quarter: 2020Q2

REPORT INFORMATION
  Report Type: Spontaneous
  Country: US (occurrence: US)
  Receive Date: 20200612
  Receipt Date: 20200612
  Transmission Date: 20200714
  Serious: No
  Sender: FDA-Public Use
  Company Number: US-HIKMA PHARMACEUTICALS USA INC.-US-H14001-20-00109

PATIENT
  Age: 77 Year
  Sex: Male
  Weight: 81.63 kg

DRUGS (5)
  1. FLUTICASONE. [Suspect]
     Active Substance: FLUTICASONE
     Indication: PARANASAL SINUS DISCOMFORT
     Dosage: 100 MG EACH NOSTRIL
     Dates: start: 20200108, end: 20200108
  2. DUTASTERIDE. [Concomitant]
     Active Substance: DUTASTERIDE
     Indication: PRODUCT USED FOR UNKNOWN INDICATION
     Route: 065
  3. FLUTICASONE. [Suspect]
     Active Substance: FLUTICASONE
     Indication: NASAL CONGESTION
     Dosage: 100 MG EACH NOSTRIL
     Dates: start: 2019, end: 2019
  4. TAMSULOSIN [Concomitant]
     Active Substance: TAMSULOSIN
     Indication: PRODUCT USED FOR UNKNOWN INDICATION
     Route: 065
  5. LUMIGAN [Concomitant]
     Active Substance: BIMATOPROST
     Indication: PRODUCT USED FOR UNKNOWN INDICATION
     Route: 065

REACTIONS (9)
  - Headache [Recovered/Resolved]
  - Flatulence [Unknown]
  - Nasal congestion [Recovering/Resolving]
  - Condition aggravated [Recovering/Resolving]
  - Epistaxis [Recovered/Resolved]
  - Off label use [Unknown]
  - Paraesthesia [Recovering/Resolving]
  - Extra dose administered [Unknown]
  - Adverse drug reaction [Recovered/Resolved]

NARRATIVE: CASE EVENT DATE: 2019
